FAERS Safety Report 9720213 (Version 1)
Quarter: 2013Q4

REPORT INFORMATION
  Report Type: Report from Study
  Country: FR (occurrence: FR)
  Receive Date: 20131129
  Receipt Date: 20131129
  Transmission Date: 20140711
  Serious: Yes (Hospitalization)
  Sender: FDA-Public Use
  Company Number: FR-ROCHE-1308652

PATIENT
  Sex: Male
  Weight: 73 kg

DRUGS (7)
  1. TOCILIZUMAB [Suspect]
     Indication: RHEUMATOID ARTHRITIS
     Dosage: 8 MG/KG
     Route: 041
     Dates: start: 20131016
  2. PRETERAX [Concomitant]
     Indication: PERIPHERAL ARTERIAL OCCLUSIVE DISEASE
     Dosage: 4/1.25 MG
     Route: 048
  3. PLAVIX [Concomitant]
     Indication: PERIPHERAL ARTERIAL OCCLUSIVE DISEASE
     Dosage: 75 MG
     Route: 048
  4. DIFFU K [Concomitant]
     Route: 048
  5. INEGY [Concomitant]
     Indication: DYSLIPIDAEMIA
     Dosage: 10/40 MG
     Route: 048
  6. LYSANXIA [Concomitant]
     Indication: INSOMNIA
     Route: 048
  7. STILNOX [Concomitant]
     Indication: INSOMNIA
     Dosage: 10 MG
     Route: 048

REACTIONS (3)
  - Asthenia [Recovered/Resolved]
  - Pain in extremity [Recovered/Resolved]
  - Tremor [Recovered/Resolved]
